FAERS Safety Report 4510092-7 (Version None)
Quarter: 2004Q4

REPORT INFORMATION
  Report Type: 
  Country: None (occurrence: None)
  Receive Date: 20041119
  Receipt Date: 20041103
  Transmission Date: 20050328
  Serious: Yes (Other)
  Sender: FDA-Public Use
  Company Number: S04-UKI-07418-01

PATIENT
  Age: 43 Year
  Sex: Male

DRUGS (2)
  1. CIPRALEX (ESCITALOPRAM) [Suspect]
     Indication: DEPRESSION
     Dosage: 10 MG QD PO
     Route: 048
     Dates: start: 20040908, end: 20041007
  2. QUETIAPINE [Concomitant]

REACTIONS (4)
  - AGGRESSION [None]
  - AGITATION [None]
  - ANGER [None]
  - PARANOIA [None]
